FAERS Safety Report 9857931 (Version 2)
Quarter: 2014Q1

REPORT INFORMATION
  Report Type: Spontaneous
  Country: GB (occurrence: GB)
  Receive Date: 20140131
  Receipt Date: 20140131
  Transmission Date: 20141002
  Serious: Yes (Other)
  Sender: FDA-Public Use
  Company Number: GB-ACCORD-019713

PATIENT
  Age: 50 Year
  Sex: Male
  Weight: 84.5 kg

DRUGS (2)
  1. METHOTREXATE [Suspect]
     Indication: PRODUCT USED FOR UNKNOWN INDICATION
     Dates: start: 20130708
  2. NAPROXEN [Concomitant]
     Dates: start: 20130718, end: 20130801

REACTIONS (1)
  - Hepatotoxicity [Unknown]
